FAERS Safety Report 5043337-8 (Version None)
Quarter: 2006Q3

REPORT INFORMATION
  Report Type: 
  Country: None (occurrence: None)
  Receive Date: 20060703
  Receipt Date: 20060703
  Transmission Date: 20061208
  Serious: Yes (Life-Threatening, Hospitalization)
  Sender: FDA-Public Use
  Company Number: None

PATIENT
  Age: 42 Year
  Sex: Male
  Weight: 83.9154 kg

DRUGS (1)
  1. CIPRO [Suspect]
     Indication: EPIDIDYMITIS
     Dosage: 2X/DAY PO
     Route: 048
     Dates: start: 20060524, end: 20060614

REACTIONS (6)
  - ABNORMAL DREAMS [None]
  - AGITATION [None]
  - ANXIETY [None]
  - DEPRESSED MOOD [None]
  - PARAESTHESIA [None]
  - SUICIDAL IDEATION [None]
